FAERS Safety Report 9696671 (Version 1)
Quarter: 2013Q4

REPORT INFORMATION
  Report Type: Spontaneous
  Country: US (occurrence: None)
  Receive Date: 20131115
  Receipt Date: 20131115
  Transmission Date: 20140711
  Serious: Yes (Life-Threatening, Hospitalization)
  Sender: FDA-Public Use
  Company Number: 1713747-2013-99975

PATIENT
  Sex: Female

DRUGS (2)
  1. DELFLEX 1.5% DEX.LM/LC 5L, 2-PK CATALOG#: 044-50521 [Suspect]
     Indication: RENAL FAILURE CHRONIC
  2. DELFLEX 1.5% DEX.LM/LC 5L, 2-PK CATALOG#: 044-50521 [Suspect]
     Indication: PERITONEAL DIALYSIS

REACTIONS (3)
  - Convulsion [None]
  - Blood glucose decreased [None]
  - Road traffic accident [None]
